FAERS Safety Report 16152929 (Version 1)
Quarter: 2019Q2

REPORT INFORMATION
  Report Type: Spontaneous
  Country: NL (occurrence: NL)
  Receive Date: 20190403
  Receipt Date: 20190403
  Transmission Date: 20190711
  Serious: Yes (Hospitalization)
  Sender: FDA-Public Use
  Company Number: NL-ACCORD-117777

PATIENT
  Age: 33 Year
  Sex: Female
  Weight: 85 kg

DRUGS (7)
  1. ZOPICLONE [Concomitant]
     Active Substance: ZOPICLONE
     Dosage: 1DD 22.5 MG
  2. ESCITALOPRAM [Concomitant]
     Active Substance: ESCITALOPRAM OXALATE
     Dosage: 1DD 30MG
  3. FERROFUMARAAT [Concomitant]
     Dosage: 2DD 200MG
  4. METFORMIN [Concomitant]
     Active Substance: METFORMIN HYDROCHLORIDE
     Dosage: 2DD 500MG
  5. AMITRIPTYLINE [Concomitant]
     Active Substance: AMITRIPTYLINE
     Dosage: 1DD 25MG
  6. OXAZEPAM. [Concomitant]
     Active Substance: OXAZEPAM
     Dosage: ZO NODIG 2DD 10MG
  7. QUETIAPINE. [Suspect]
     Active Substance: QUETIAPINE
     Indication: MAJOR DEPRESSION
     Dosage: 1DD1, TABLET CONTROLLED RELEASE, 300 MG (MILLIGRAM)
     Dates: start: 2017, end: 20190115

REACTIONS (2)
  - Overdose [Unknown]
  - Epilepsy [Recovered/Resolved]

NARRATIVE: CASE EVENT DATE: 20190115
